FAERS Safety Report 8608522-4 (Version None)
Quarter: 2012Q3

REPORT INFORMATION
  Report Type: 
  Country: None (occurrence: None)
  Receive Date: 20120806
  Receipt Date: 20120731
  Transmission Date: 20120928
  Serious: Yes (Hospitalization)
  Sender: FDA-Public Use
  Company Number: 2012185024

PATIENT
  Age: 43 Year
  Sex: Female
  Weight: 78 kg

DRUGS (5)
  1. ADRIAMYCIN (DOXORUBICIN) [Concomitant]
  2. DACARBAZINE [Concomitant]
  3. FRAGMIN [Suspect]
     Dates: start: 20111201
  4. BLEOMYCIN SULFATE [Concomitant]
  5. VINBLASTINE SULFATE [Concomitant]

REACTIONS (1)
  - OSTEOPOROTIC FRACTURE [None]
